FAERS Safety Report 20684728 (Version 1)
Quarter: 2022Q2

REPORT INFORMATION
  Report Type: Spontaneous
  Country: HR (occurrence: HR)
  Receive Date: 20220407
  Receipt Date: 20220407
  Transmission Date: 20220720
  Serious: Yes (Other)
  Sender: FDA-Public Use
  Company Number: None

PATIENT
  Age: 46 Year
  Sex: Male

DRUGS (3)
  1. ALPRAZOLAM [Suspect]
     Active Substance: ALPRAZOLAM
     Dosage: UNIT DOSE: 800 MG, FREQUENCY TIME- 1 DAY,
     Route: 048
  2. NORMABEL [Suspect]
     Active Substance: DIAZEPAM
     Dosage: UNIT DOSE: 50 MG, FREQUENCY TIME- 1 DAY,
     Route: 048
  3. SEROQUEL [Suspect]
     Active Substance: QUETIAPINE FUMARATE
     Dosage: UNIT DOSE: 1400 MG, FREQUENCY TIME- 1 DAY,
     Route: 048

REACTIONS (2)
  - Suicide attempt [Unknown]
  - Somnolence [Unknown]

NARRATIVE: CASE EVENT DATE: 20211108
